FAERS Safety Report 9738971 (Version 1)
Quarter: 2013Q4

REPORT INFORMATION
  Report Type: Spontaneous
  Country: JP (occurrence: JP)
  Receive Date: 20131209
  Receipt Date: 20131209
  Transmission Date: 20140711
  Serious: Yes (Hospitalization)
  Sender: FDA-Public Use
  Company Number: PHHY2013JP142802

PATIENT
  Age: 70 Year
  Sex: Male

DRUGS (2)
  1. EXELON PATCH [Suspect]
     Indication: DEMENTIA WITH LEWY BODIES
     Dosage: 13.5 MG,DAILY
     Route: 062
     Dates: start: 201306, end: 20131130
  2. EXELON PATCH [Suspect]
     Indication: OFF LABEL USE

REACTIONS (4)
  - Pneumonia [Unknown]
  - Hypersomnia [Unknown]
  - Feeling abnormal [Unknown]
  - Drug administration error [Unknown]
